FAERS Safety Report 24015777 (Version 2)
Quarter: 2024Q3

REPORT INFORMATION
  Report Type: Spontaneous
  Country: KR (occurrence: KR)
  Receive Date: 20240626
  Receipt Date: 20240705
  Transmission Date: 20241016
  Serious: Yes (Hospitalization)
  Sender: BOEHRINGER INGELHEIM
  Company Number: KR-BoehringerIngelheim-2024-BI-035225

PATIENT
  Age: 64 Year
  Sex: Male

DRUGS (12)
  1. JARDIANCE [Suspect]
     Active Substance: EMPAGLIFLOZIN
     Indication: Glycosylated haemoglobin increased
  2. ASPIRIN [Concomitant]
     Active Substance: ASPIRIN
     Indication: Product used for unknown indication
  3. TICAGRELOR [Concomitant]
     Active Substance: TICAGRELOR
     Indication: Product used for unknown indication
  4. Heparinization [Concomitant]
     Indication: Product used for unknown indication
  5. Atorva/Ezetimibe [Concomitant]
     Indication: Product used for unknown indication
     Dosage: 40/10MG
  6. VALSARTAN [Concomitant]
     Active Substance: VALSARTAN
     Indication: Product used for unknown indication
  7. BISOPROLOL [Concomitant]
     Active Substance: BISOPROLOL\BISOPROLOL FUMARATE
     Indication: Product used for unknown indication
     Dosage: 1/25MG
  8. LANTUS [Concomitant]
     Active Substance: INSULIN GLARGINE
     Indication: Product used for unknown indication
  9. LANTUS [Concomitant]
     Active Substance: INSULIN GLARGINE
  10. HUMALOG [Concomitant]
     Active Substance: INSULIN LISPRO
     Indication: Product used for unknown indication
  11. HUMALOG [Concomitant]
     Active Substance: INSULIN LISPRO
  12. NS hydration [Concomitant]
     Indication: Dehydration

REACTIONS (7)
  - Tachypnoea [Unknown]
  - Blood bicarbonate decreased [Unknown]
  - Euglycaemic diabetic ketoacidosis [Unknown]
  - Cold sweat [Unknown]
  - Asthenia [Unknown]
  - Dyspepsia [Unknown]
  - Chest discomfort [Unknown]
